FAERS Safety Report 8480789-5 (Version None)
Quarter: 2012Q2

REPORT INFORMATION
  Report Type: 
  Country: None (occurrence: None)
  Receive Date: 20120626
  Receipt Date: 20120626
  Transmission Date: 20120825
  Serious: Yes (Life-Threatening, Hospitalization)
  Sender: FDA-Public Use
  Company Number: None

PATIENT
  Age: 71 Year
  Sex: Female
  Weight: 83.9154 kg

DRUGS (2)
  1. MOXIFLOXACIN HCL [Suspect]
     Indication: INFECTION
     Dosage: 400 MG DAILY PO
     Route: 048
     Dates: start: 20120617, end: 20120621
  2. MOXIFLOXACIN HCL [Suspect]
     Indication: PNEUMONIA
     Dosage: 400 MG DAILY PO
     Route: 048
     Dates: start: 20120617, end: 20120621

REACTIONS (2)
  - HYPERSENSITIVITY [None]
  - DIZZINESS [None]
